FAERS Safety Report 11814202 (Version 1)
Quarter: 2015Q4

REPORT INFORMATION
  Report Type: Report from Study
  Country: US (occurrence: US)
  Receive Date: 20151209
  Receipt Date: 20151209
  Transmission Date: 20160305
  Serious: Yes (Other)
  Sender: FDA-Public Use
  Company Number: US-AMGEN-USASL2015107339

PATIENT
  Age: 79 Year
  Sex: Male
  Weight: 70.76 kg

DRUGS (2)
  1. REPATHA [Suspect]
     Active Substance: EVOLOCUMAB
     Indication: HYPERCHOLESTEROLAEMIA
     Dosage: 140 MG, Q2WK
     Route: 058
     Dates: start: 20151009
  2. REPATHA [Suspect]
     Active Substance: EVOLOCUMAB
     Indication: TYPE V HYPERLIPIDAEMIA
     Dosage: UNK
     Route: 058

REACTIONS (14)
  - Dysphonia [Unknown]
  - Rhinorrhoea [Unknown]
  - Musculoskeletal discomfort [Unknown]
  - Dysphagia [Not Recovered/Not Resolved]
  - Injection site discolouration [Recovering/Resolving]
  - Hearing impaired [Unknown]
  - Back pain [Unknown]
  - Injection site pain [Unknown]
  - Oropharyngeal pain [Unknown]
  - Angina pectoris [Unknown]
  - Myalgia [Unknown]
  - Sinusitis [Not Recovered/Not Resolved]
  - Nasopharyngitis [Unknown]
  - Throat tightness [Not Recovered/Not Resolved]

NARRATIVE: CASE EVENT DATE: 2015
